FAERS Safety Report 21205074 (Version 2)
Quarter: 2022Q3

REPORT INFORMATION
  Report Type: Spontaneous
  Country: CA (occurrence: CA)
  Receive Date: 20220812
  Receipt Date: 20220921
  Transmission Date: 20221027
  Serious: Yes (Hospitalization)
  Sender: FDA-Public Use
  Company Number: CA-CELLTRION INC.-2022CA012721

PATIENT

DRUGS (2)
  1. INFLECTRA [Suspect]
     Active Substance: INFLIXIMAB-DYYB
     Indication: Rheumatoid arthritis
     Dosage: 400 MG EVERY 6 TO 8 WEEKS
     Route: 064
     Dates: start: 20180905, end: 20210201
  2. INFLECTRA [Suspect]
     Active Substance: INFLIXIMAB-DYYB
     Dosage: 400 MG EVERY 6 WEEK
     Route: 064
     Dates: start: 20210316

REACTIONS (3)
  - Maternal exposure during pregnancy [Unknown]
  - Premature baby [Not Recovered/Not Resolved]
  - Low birth weight baby [Unknown]

NARRATIVE: CASE EVENT DATE: 20220721
